FAERS Safety Report 4978822-8 (Version None)
Quarter: 2006Q2

REPORT INFORMATION
  Report Type: 
  Country: None (occurrence: None)
  Receive Date: 20060417
  Receipt Date: 20060410
  Transmission Date: 20061013
  Serious: Yes (Death, Hospitalization)
  Sender: FDA-Public Use
  Company Number: 2006-03-1237

PATIENT
  Age: 53 Year
  Sex: Female

DRUGS (1)
  1. TEMODAL [Suspect]
     Indication: GLIOMA
     Dosage: 200 MG/M2 ORAL
     Route: 048
     Dates: start: 20050228, end: 20050608

REACTIONS (5)
  - ARM AMPUTATION [None]
  - LEUKOPENIA [None]
  - NECROTISING FASCIITIS [None]
  - NEUTROPENIA [None]
  - SEPTIC SHOCK [None]
